FAERS Safety Report 8947361 (Version 2)
Quarter: 2012Q4

REPORT INFORMATION
  Report Type: 
  Country: GB (occurrence: GB)
  Receive Date: 20121205
  Receipt Date: 20121217
  Transmission Date: 20130627
  Serious: Yes (Life-Threatening, Hospitalization, Other)
  Sender: FDA-Public Use
  Company Number: GB-JNJFOC-20121114881

PATIENT
  Age: 92 Year
  Sex: Male
  Weight: 60 kg

DRUGS (6)
  1. STELARA [Suspect]
     Indication: PSORIASIS
     Route: 058
     Dates: start: 20120417
  2. QUININE [Concomitant]
     Indication: MUSCLE SPASMS
     Dosage: for several years
     Route: 048
  3. AMITRIPTYLINE [Concomitant]
     Indication: HYPERSOMNIA
     Dosage: for several years
     Route: 048
  4. ALENDRONIC ACID [Concomitant]
     Indication: OSTEOPOROSIS
     Dosage: for several years
     Route: 065
  5. LANSOPRAZOLE [Concomitant]
     Indication: HIATUS HERNIA
     Dosage: for several years
     Route: 048
  6. CALCICHEW [Concomitant]
     Indication: OSTEOPOROSIS
     Dosage: for several years
     Route: 048

REACTIONS (1)
  - Transient ischaemic attack [Recovered/Resolved]
